FAERS Safety Report 10028073 (Version 3)
Quarter: 2014Q2

REPORT INFORMATION
  Report Type: Spontaneous
  Country: US (occurrence: None)
  Receive Date: 20140304
  Receipt Date: 20140618
  Transmission Date: 20141212
  Serious: Yes (Death, Life-Threatening, Hospitalization, Other)
  Sender: FDA-Public Use
  Company Number: ADR-2014-00323

PATIENT
  Age: 47 Year
  Sex: Male

DRUGS (2)
  1. COMPOUNDED BACLOFEN [Suspect]
     Indication: MUSCLE SPASTICITY
     Dosage: 304.3 MCG/DAY
  2. DILAUDID [Suspect]
     Dosage: 0.4565 MG/DAY

REACTIONS (12)
  - Agitation [None]
  - Unevaluable event [None]
  - Hypertension [None]
  - Pain [None]
  - Muscle spasms [None]
  - Drug withdrawal syndrome [None]
  - Abdominal pain [None]
  - Abdominal distension [None]
  - Sepsis [None]
  - Cardiogenic shock [None]
  - Device leakage [None]
  - Device malfunction [None]
